FAERS Safety Report 10214061 (Version 2)
Quarter: 2014Q2

REPORT INFORMATION
  Report Type: Spontaneous
  Country: US (occurrence: US)
  Receive Date: 20140603
  Receipt Date: 20140609
  Transmission Date: 20141212
  Serious: Yes (Death, Other)
  Sender: FDA-Public Use
  Company Number: US-009507513-1405USA015188

PATIENT
  Sex: Female

DRUGS (9)
  1. FOSAMAX [Suspect]
     Route: 048
  2. BOSULIF [Suspect]
     Indication: CHRONIC MYELOID LEUKAEMIA
     Dosage: 1 TABLET BY MOUTH, DAILY ON DAYS 1-28
     Route: 048
     Dates: start: 20130326
  3. CALCIUM (UNSPECIFIED) (+) VITAMIN D (UNSPECIFIED) [Concomitant]
  4. FERROUS SULFATE [Concomitant]
  5. VITAMINS (UNSPECIFIED) [Concomitant]
  6. NOVOLOG [Concomitant]
  7. THYROID [Concomitant]
  8. CYANOCOBALAMIN [Concomitant]
  9. VITAMIN D (UNSPECIFIED) [Concomitant]

REACTIONS (3)
  - Chronic myeloid leukaemia [Fatal]
  - Drug hypersensitivity [Unknown]
  - Drug hypersensitivity [Unknown]
